FAERS Safety Report 13306766 (Version 1)
Quarter: 2017Q1

REPORT INFORMATION
  Report Type: Spontaneous
  Country: US (occurrence: US)
  Receive Date: 20170308
  Receipt Date: 20170308
  Transmission Date: 20170428
  Serious: Yes (Other)
  Sender: FDA-Public Use
  Company Number: US-AKORN PHARMACEUTICALS-2016AKN00447

PATIENT
  Age: 77 Year
  Sex: Male
  Weight: 68.93 kg

DRUGS (14)
  1. VITAMIN D [Concomitant]
     Active Substance: CHOLECALCIFEROL
     Dosage: UNK IU, UNK
  2. IMDUR [Concomitant]
     Active Substance: ISOSORBIDE MONONITRATE
     Dosage: UNK, UNK
  3. ALBUTEROL. [Concomitant]
     Active Substance: ALBUTEROL
  4. SYNTHROID [Concomitant]
     Active Substance: LEVOTHYROXINE SODIUM
     Dosage: UNK, UNK
  5. PRAVASTATIN. [Concomitant]
     Active Substance: PRAVASTATIN
     Dosage: UNK MG, UNK
  6. TRICOR [Concomitant]
     Active Substance: FENOFIBRATE
     Dosage: 145 MG, 1X/DAY
     Dates: start: 20160606
  7. ZYRTEC [Concomitant]
     Active Substance: CETIRIZINE HYDROCHLORIDE
     Dosage: UNK, UNK
  8. METOPROLOL. [Concomitant]
     Active Substance: METOPROLOL
     Dosage: UNK MG, UNK
  9. FOLIC ACID. [Concomitant]
     Active Substance: FOLIC ACID
  10. MYORISAN [Suspect]
     Active Substance: ISOTRETINOIN
     Indication: FOLLICULITIS
     Dosage: 1 CAPSULES, 1X/DAY
     Route: 048
     Dates: start: 20160606, end: 20160608
  11. FINASTERIDE. [Concomitant]
     Active Substance: FINASTERIDE
     Dosage: 5 UNK, UNK
  12. PEPCID [Concomitant]
     Active Substance: FAMOTIDINE
     Dosage: UNK MG, UNK
  13. FLOMAX [Concomitant]
     Active Substance: TAMSULOSIN HYDROCHLORIDE
     Dosage: UNK MG, UNK
  14. GEMFIBROZIL. [Concomitant]
     Active Substance: GEMFIBROZIL

REACTIONS (2)
  - Blood triglycerides increased [Unknown]
  - Product use issue [Unknown]

NARRATIVE: CASE EVENT DATE: 20160606
